FAERS Safety Report 4986149-3 (Version None)
Quarter: 2006Q2

REPORT INFORMATION
  Report Type: 
  Country: None (occurrence: None)
  Receive Date: 20060424
  Receipt Date: 20060411
  Transmission Date: 20061013
  Serious: Yes (Hospitalization)
  Sender: FDA-Public Use
  Company Number: 430017M06USA

PATIENT
  Age: 53 Year
  Sex: Female
  Weight: 59.4 kg

DRUGS (8)
  1. NOVANTRONE [Suspect]
     Indication: ACUTE MYELOID LEUKAEMIA
     Dates: start: 20060106
  2. ESTOPOSIDE (ETOPOSIDE /00511901/) [Suspect]
     Indication: ACUTE MYELOID LEUKAEMIA
     Dates: start: 20060106
  3. CYTARABINE [Suspect]
     Indication: ACUTE MYELOID LEUKAEMIA
     Dates: start: 20060106
  4. IMITREX [Concomitant]
  5. SYNTHROID [Suspect]
  6. K-DUR 10 [Concomitant]
  7. FAMVIR [Concomitant]
  8. VORICONAZOLE (VORICONAZOLE) [Concomitant]

REACTIONS (11)
  - ACUTE MYELOID LEUKAEMIA [None]
  - CSF TEST ABNORMAL [None]
  - HEADACHE [None]
  - MALIGNANT NEOPLASM PROGRESSION [None]
  - NEOPLASM MALIGNANT [None]
  - NERVOUS SYSTEM DISORDER [None]
  - NEUTROPENIA [None]
  - NEUTROPHIL COUNT DECREASED [None]
  - PLATELET COUNT DECREASED [None]
  - PYREXIA [None]
  - WHITE BLOOD CELL COUNT DECREASED [None]
